FAERS Safety Report 23044646 (Version 3)
Quarter: 2023Q4

REPORT INFORMATION
  Report Type: Spontaneous
  Country: US (occurrence: US)
  Receive Date: 20231009
  Receipt Date: 20231019
  Transmission Date: 20240109
  Serious: Yes (Hospitalization, Other)
  Sender: FDA-Public Use
  Company Number: US-GILEAD-2023-0646464

PATIENT
  Sex: Male

DRUGS (8)
  1. SOFOSBUVIR\VELPATASVIR [Interacting]
     Active Substance: SOFOSBUVIR\VELPATASVIR
     Indication: Chronic hepatitis C
     Dosage: 400MG-100MG, TAKE 1 TABLET BY MOUTH ONCE DAILY
     Route: 048
  2. OMEPRAZOLE [Interacting]
     Active Substance: OMEPRAZOLE
     Indication: Product used for unknown indication
     Dosage: UNK
     Route: 065
  3. CARVEDILOL [Concomitant]
     Active Substance: CARVEDILOL
  4. ENTECAVIR [Concomitant]
     Active Substance: ENTECAVIR
  5. FAMOTIDINE [Concomitant]
     Active Substance: FAMOTIDINE
  6. HYDROXYZINE HYDROCHLORIDE [Concomitant]
     Active Substance: HYDROXYZINE HYDROCHLORIDE
  7. URSODIOL [Concomitant]
     Active Substance: URSODIOL
  8. HYDROXYZINE [Concomitant]
     Active Substance: HYDROXYZINE HYDROCHLORIDE

REACTIONS (6)
  - Gastrointestinal disorder [Unknown]
  - Decreased appetite [Unknown]
  - Hepatic neoplasm [Unknown]
  - Sepsis [Unknown]
  - Surgery [Unknown]
  - Drug interaction [Unknown]
